FAERS Safety Report 11434153 (Version 5)
Quarter: 2015Q4

REPORT INFORMATION
  Report Type: Spontaneous
  Country: US (occurrence: US)
  Receive Date: 20150831
  Receipt Date: 20151125
  Transmission Date: 20160304
  Serious: Yes (Hospitalization)
  Sender: FDA-Public Use
  Company Number: US-VERTEX PHARMACEUTICALS-2015-003356

PATIENT
  Age: 29 Year
  Sex: Female
  Weight: 42 kg

DRUGS (24)
  1. CAYSTON [Concomitant]
     Active Substance: AZTREONAM
     Dosage: 75 MG, TID
  2. METOPROLOL [Concomitant]
     Active Substance: METOPROLOL
  3. AZITHROMYCIN [Concomitant]
     Active Substance: AZITHROMYCIN ANHYDROUS
     Dosage: 500 MG,MONDAY, WEDNESDAY, FRIDAY
  4. ADVAIR HFA [Concomitant]
     Active Substance: FLUTICASONE PROPIONATE\SALMETEROL XINAFOATE
     Dosage: 1 DF, BID
  5. OMEPRAZOLE. [Concomitant]
     Active Substance: OMEPRAZOLE
  6. CREON [Concomitant]
     Active Substance: PANCRELIPASE AMYLASE\PANCRELIPASE LIPASE\PANCRELIPASE PROTEASE
     Dosage: 4 CAPSULES BEFORE MEALS AND 3 CAPSULESBEFORE SNACKS
     Route: 048
  7. HYDROXYCHLOROQUINE SULFATE. [Concomitant]
     Active Substance: HYDROXYCHLOROQUINE SULFATE
     Dosage: 200 MG, QD
     Route: 048
  8. FLONASE [Concomitant]
     Active Substance: FLUTICASONE PROPIONATE
     Indication: HYPERSENSITIVITY
     Dosage: 1 SPRAY EACH NOSTRIL, QD
  9. URSODIOL. [Concomitant]
     Active Substance: URSODIOL
  10. NEUTRONTIN [Concomitant]
     Dosage: 1200 MG, QD
     Route: 048
  11. WARFARIN [Concomitant]
     Active Substance: WARFARIN
  12. LISINOPRIL. [Concomitant]
     Active Substance: LISINOPRIL
  13. ALBUTEROL. [Concomitant]
     Active Substance: ALBUTEROL
     Dosage: 2.5 MG, PRN
     Route: 055
  14. PLAQUENIL [Concomitant]
     Active Substance: HYDROXYCHLOROQUINE SULFATE
  15. MOTRIN [Concomitant]
     Active Substance: IBUPROFEN
     Dosage: 400 MG, PRN
     Route: 048
  16. JANTOVEN [Concomitant]
     Active Substance: WARFARIN SODIUM
     Dosage: 1 MG, UNK
  17. DIPHENHYDRAMINE HCL [Concomitant]
     Active Substance: DIPHENHYDRAMINE HYDROCHLORIDE
     Dosage: 25 MG, TID
     Route: 042
  18. AQUADEKS [Concomitant]
     Dosage: 2 TABS, QD
     Route: 048
  19. PULMOZYME [Concomitant]
     Active Substance: DORNASE ALFA
     Dosage: 2.5 ML, UNK
     Route: 055
  20. SODIUM CHLORIDE. [Concomitant]
     Active Substance: SODIUM CHLORIDE
     Dosage: 1 DF, BID
  21. ORKAMBI [Suspect]
     Active Substance: IVACAFTOR\LUMACAFTOR
     Indication: CYSTIC FIBROSIS
     Dosage: 400MG/250MG BID
     Route: 048
     Dates: start: 20150725
  22. NOVOLOG [Concomitant]
     Active Substance: INSULIN ASPART
     Dosage: 100 U/ML
  23. D 5000 [Concomitant]
     Dosage: 3 DF, QD
     Route: 048
  24. PERCOCET [Concomitant]
     Active Substance: ACETAMINOPHEN\OXYCODONE HYDROCHLORIDE
     Indication: CHEST PAIN
     Dosage: 1-2 TABLETS , PRN

REACTIONS (4)
  - Infective pulmonary exacerbation of cystic fibrosis [Recovering/Resolving]
  - Chest discomfort [Unknown]
  - Dyspnoea [Unknown]
  - Infection [Unknown]

NARRATIVE: CASE EVENT DATE: 201507
